FAERS Safety Report 9960169 (Version 1)
Quarter: 2014Q1

REPORT INFORMATION
  Report Type: Spontaneous
  Country: US (occurrence: None)
  Receive Date: 20140228
  Receipt Date: 20140228
  Transmission Date: 20141002
  Serious: Yes (Other)
  Sender: FDA-Public Use
  Company Number: None

PATIENT
  Sex: Female

DRUGS (3)
  1. AVONEX [Suspect]
     Indication: MULTIPLE SCLEROSIS
     Dates: start: 20120501, end: 20121001
  2. COPAXONE [Suspect]
     Indication: MULTIPLE SCLEROSIS
     Dates: start: 20121001, end: 20121201
  3. SOLU-MEDROL [Suspect]

REACTIONS (7)
  - Influenza like illness [None]
  - Weight decreased [None]
  - Vomiting [None]
  - Pyrexia [None]
  - Hypersensitivity [None]
  - Paraesthesia [None]
  - Alopecia [None]
